FAERS Safety Report 6204194-7 (Version None)
Quarter: 2009Q2

REPORT INFORMATION
  Report Type: 
  Country: None (occurrence: None)
  Receive Date: 20090527
  Receipt Date: 20090521
  Transmission Date: 20091009
  Serious: Yes (Other)
  Sender: FDA-Public Use
  Company Number: US-ASTRAZENECA-2009UW13159

PATIENT
  Age: 19 Year
  Sex: Male
  Weight: 73.9 kg

DRUGS (3)
  1. SEROQUEL [Suspect]
     Indication: OBSESSIVE-COMPULSIVE DISORDER
     Route: 048
  2. SEROQUEL [Suspect]
     Route: 048
  3. CYMBALTA [Concomitant]
     Route: 048

REACTIONS (2)
  - FATIGUE [None]
  - ROAD TRAFFIC ACCIDENT [None]
